FAERS Safety Report 7517907-9 (Version None)
Quarter: 2011Q2

REPORT INFORMATION
  Report Type: 
  Country: None (occurrence: None)
  Receive Date: 20110527
  Receipt Date: 20110527
  Transmission Date: 20111010
  Serious: Yes (Other)
  Sender: FDA-Public Use
  Company Number: None

PATIENT
  Sex: Female
  Weight: 21.3191 kg

DRUGS (2)
  1. CEFDINIR [Suspect]
     Indication: BRONCHITIS
     Dosage: 1 AND 1/2 TSP DAILY PO
     Route: 048
     Dates: start: 20110526, end: 20110526
  2. CEFDINIR [Suspect]
     Indication: PHARYNGITIS STREPTOCOCCAL
     Dosage: 1 AND 1/2 TSP DAILY PO
     Route: 048
     Dates: start: 20110526, end: 20110526

REACTIONS (3)
  - PRURITUS [None]
  - CHILLS [None]
  - THROAT IRRITATION [None]
